FAERS Safety Report 13890038 (Version 2)
Quarter: 2020Q2

REPORT INFORMATION
  Report Type: Spontaneous
  Country: FR (occurrence: FR)
  Receive Date: 20170822
  Receipt Date: 20200408
  Transmission Date: 20200713
  Serious: Yes (Life-Threatening)
  Sender: FDA-Public Use
  Company Number: FR-BEH-2017083010

PATIENT
  Age: 67 Year
  Sex: Male
  Weight: 93 kg

DRUGS (1)
  1. PRIVIGEN [Suspect]
     Active Substance: HUMAN IMMUNOGLOBULIN G
     Indication: LIMBIC ENCEPHALITIS
     Dosage: 60 G, TOT
     Route: 042
     Dates: start: 20170808, end: 20170808

REACTIONS (16)
  - Cyanosis [Recovered/Resolved]
  - Rhonchi [Recovered/Resolved]
  - Wheezing [Recovered/Resolved]
  - PO2 decreased [Recovered/Resolved]
  - Tachycardia [Recovered/Resolved]
  - No adverse event [Unknown]
  - Product use in unapproved indication [Unknown]
  - Hypotension [Recovered/Resolved]
  - Body temperature increased [Recovered/Resolved]
  - Lactic acidosis [Recovered/Resolved]
  - Dyspnoea [Recovered/Resolved]
  - Pulse abnormal [Recovered/Resolved]
  - Tachypnoea [Recovered/Resolved]
  - Anaphylactic shock [Recovered/Resolved]
  - Tremor [Recovered/Resolved]
  - Hypoxia [Recovered/Resolved]

NARRATIVE: CASE EVENT DATE: 20170808
